FAERS Safety Report 4635295-2 (Version None)
Quarter: 2005Q2

REPORT INFORMATION
  Report Type: 
  Country: None (occurrence: None)
  Receive Date: 20050411
  Receipt Date: 20050328
  Transmission Date: 20051028
  Serious: Yes (Disabling, Other)
  Sender: FDA-Public Use
  Company Number: HQWYE413518FEB05

PATIENT
  Sex: Female

DRUGS (3)
  1. EFFEXOR [Suspect]
     Dosage: SEE IAMGE
     Route: 048
     Dates: start: 20030501, end: 20030101
  2. EFFEXOR [Suspect]
     Dosage: SEE IAMGE
     Route: 048
     Dates: start: 20030201, end: 20030501
  3. EFFEXOR [Suspect]
     Dosage: SEE IAMGE
     Route: 048
     Dates: start: 20030101

REACTIONS (7)
  - ANXIETY [None]
  - DRUG WITHDRAWAL SYNDROME [None]
  - MUSCLE TWITCHING [None]
  - NERVOUS SYSTEM DISORDER [None]
  - PARAESTHESIA [None]
  - TREATMENT NONCOMPLIANCE [None]
  - VISION BLURRED [None]
